FAERS Safety Report 7542081-2 (Version None)
Quarter: 2011Q2

REPORT INFORMATION
  Report Type: 
  Country: None (occurrence: None)
  Receive Date: 20110613
  Receipt Date: 20110602
  Transmission Date: 20111010
  Serious: Yes (Disabling)
  Sender: FDA-Public Use
  Company Number: GR-BAXTER-2011BH018201

PATIENT
  Age: 62 Year
  Sex: Female
  Weight: 74 kg

DRUGS (5)
  1. PACLITAXEL [Suspect]
     Indication: BREAST CANCER STAGE III
     Route: 065
  2. CYCLOPHOSPHAMIDE [Suspect]
     Indication: BREAST CANCER STAGE III
     Dosage: 3 CYCLES
     Route: 042
     Dates: start: 20050825, end: 20051020
  3. METHOTREXATE [Suspect]
     Indication: BREAST CANCER STAGE III
     Route: 065
  4. EPIRUBICIN HYDROCHLORIDE [Suspect]
     Indication: BREAST CANCER STAGE III
     Dosage: 3 CYCLES
     Route: 042
     Dates: start: 20050707, end: 20050804
  5. FLUOROURACIL [Suspect]
     Indication: BREAST CANCER STAGE III
     Route: 065

REACTIONS (1)
  - MULTIPLE MYELOMA [None]
